FAERS Safety Report 10505648 (Version 2)
Quarter: 2014Q4

REPORT INFORMATION
  Report Type: Report from Study
  Country: US (occurrence: US)
  Receive Date: 20141008
  Receipt Date: 20141118
  Transmission Date: 20150528
  Serious: Yes (Hospitalization)
  Sender: FDA-Public Use
  Company Number: US-SA-2014SA135674

PATIENT
  Age: 84 Year
  Sex: Male

DRUGS (5)
  1. METFORMIN [Concomitant]
     Active Substance: METFORMIN HYDROCHLORIDE
     Dosage: STRENGTH: 500 MG
  2. NOVOLOG [Suspect]
     Active Substance: INSULIN ASPART
     Dosage: DOSE:15 UNIT(S)
     Route: 065
  3. SOLOSTAR [Concomitant]
     Active Substance: DEVICE
  4. GLIPIZIDE. [Concomitant]
     Active Substance: GLIPIZIDE
  5. LANTUS SOLOSTAR [Suspect]
     Active Substance: INSULIN GLARGINE
     Indication: DIABETES MELLITUS
     Dosage: DOSE:20 UNIT(S)
     Route: 065

REACTIONS (2)
  - Drug administration error [Unknown]
  - Knee operation [Unknown]

NARRATIVE: CASE EVENT DATE: 20140811
